FAERS Safety Report 17566678 (Version 4)
Quarter: 2021Q2

REPORT INFORMATION
  Report Type: Report from Study
  Country: None (occurrence: US)
  Receive Date: 20200320
  Receipt Date: 20210416
  Transmission Date: 20210716
  Serious: Yes (Other)
  Sender: FDA-Public Use
  Company Number: US-ABBVIE-18K-163-3110284-00

PATIENT
  Sex: Female

DRUGS (10)
  1. IMBRUVICA [Suspect]
     Active Substance: IBRUTINIB
     Dosage: 140 MG, QD
     Route: 048
  2. IRON [Concomitant]
     Active Substance: IRON
     Indication: ANAEMIA
  3. IMBRUVICA [Suspect]
     Active Substance: IBRUTINIB
     Route: 048
  4. IMBRUVICA [Suspect]
     Active Substance: IBRUTINIB
     Route: 048
     Dates: start: 20190626
  5. IMBRUVICA [Suspect]
     Active Substance: IBRUTINIB
     Route: 048
  6. MOBIC [Concomitant]
     Active Substance: MELOXICAM
     Indication: RHEUMATOID ARTHRITIS
     Dosage: 7.5 MG, UNK
  7. IMBRUVICA [Suspect]
     Active Substance: IBRUTINIB
     Route: 048
     Dates: start: 20180823
  8. IMBRUVICA [Suspect]
     Active Substance: IBRUTINIB
     Route: 048
     Dates: start: 20180626, end: 20180823
  9. IMBRUVICA [Suspect]
     Active Substance: IBRUTINIB
     Indication: CHRONIC LYMPHOCYTIC LEUKAEMIA
     Dosage: 420 MG, QD
     Route: 048
     Dates: start: 20180525
  10. IMBRUVICA [Suspect]
     Active Substance: IBRUTINIB
     Route: 048
     Dates: start: 20180824

REACTIONS (16)
  - Fatigue [Not Recovered/Not Resolved]
  - Myalgia [Unknown]
  - Ear infection [Unknown]
  - Emotional disorder [Unknown]
  - Memory impairment [Not Recovered/Not Resolved]
  - Rash [Unknown]
  - Onychoclasis [Not Recovered/Not Resolved]
  - Skin disorder [Unknown]
  - Diarrhoea [Unknown]
  - Pharyngitis [Unknown]
  - Nephrolithiasis [Unknown]
  - Dry throat [Unknown]
  - Dry skin [Not Recovered/Not Resolved]
  - Arthralgia [Unknown]
  - Alopecia [Recovered/Resolved]
  - Tooth extraction [Not Recovered/Not Resolved]
